FAERS Safety Report 9056864 (Version 1)
Quarter: 2013Q1

REPORT INFORMATION
  Report Type: Report from Study
  Country: JP (occurrence: JP)
  Receive Date: 20130201
  Receipt Date: 20130201
  Transmission Date: 20140127
  Serious: Yes (Other)
  Sender: FDA-Public Use
  Company Number: JP-GLAXOSMITHKLINE-B0860770A

PATIENT
  Age: 5 Decade
  Sex: Female
  Weight: 45 kg

DRUGS (10)
  1. TYKERB [Suspect]
     Indication: BREAST CANCER
     Route: 048
     Dates: start: 20110917, end: 20111006
  2. TYKERB [Suspect]
     Indication: BREAST CANCER
     Route: 048
     Dates: start: 20111014, end: 20111120
  3. TYKERB [Suspect]
     Indication: BREAST CANCER
     Route: 048
     Dates: start: 20111216, end: 20120910
  4. TYKERB [Suspect]
     Indication: BREAST CANCER
     Route: 048
     Dates: start: 20120924
  5. XELODA [Suspect]
     Route: 048
     Dates: start: 20110916, end: 20110930
  6. XELODA [Suspect]
     Route: 048
     Dates: start: 20111014, end: 20120528
  7. XELODA [Suspect]
     Route: 048
     Dates: start: 20120710, end: 20120730
  8. XELODA [Suspect]
     Route: 048
     Dates: start: 20120820, end: 20120902
  9. XELODA [Suspect]
     Route: 048
     Dates: start: 20120924
  10. SODIUM GUALENATE [Concomitant]
     Indication: PROPHYLAXIS
     Route: 002
     Dates: start: 20110917, end: 20120205

REACTIONS (10)
  - Cognitive disorder [Recovered/Resolved]
  - Nausea [Recovered/Resolved]
  - Diarrhoea [Recovered/Resolved]
  - Acne [Recovering/Resolving]
  - Paronychia [Recovering/Resolving]
  - Stomatitis [Not Recovered/Not Resolved]
  - Acne [Not Recovered/Not Resolved]
  - Paronychia [Not Recovered/Not Resolved]
  - Nasopharyngitis [Recovered/Resolved]
  - Gastritis [Recovering/Resolving]
